FAERS Safety Report 4880707-2 (Version None)
Quarter: 2006Q1

REPORT INFORMATION
  Report Type: 
  Country: None (occurrence: None)
  Receive Date: 20060113
  Receipt Date: 20051220
  Transmission Date: 20060701
  Serious: Yes (Hospitalization, Other)
  Sender: FDA-Public Use
  Company Number: US-MERCK-0512USA03296

PATIENT
  Age: 60 Year
  Sex: Female
  Weight: 84 kg

DRUGS (1)
  1. VIOXX [Suspect]
     Indication: FIBROMYALGIA
     Route: 048
     Dates: start: 20010101, end: 20020101

REACTIONS (7)
  - ARTERIAL OCCLUSIVE DISEASE [None]
  - ASTHENIA [None]
  - CHEST PAIN [None]
  - HYPERHIDROSIS [None]
  - HYSTERECTOMY [None]
  - MYOCARDIAL INFARCTION [None]
  - NAUSEA [None]
